FAERS Safety Report 4876081-8 (Version None)
Quarter: 2006Q1

REPORT INFORMATION
  Report Type: 
  Country: None (occurrence: None)
  Receive Date: 20060106
  Receipt Date: 20060106
  Transmission Date: 20060701
  Serious: Yes (Other)
  Sender: FDA-Public Use
  Company Number: None

PATIENT
  Sex: Female

DRUGS (1)
  1. HYDROGEN PEROXIDE SOLUTION [Suspect]

REACTIONS (7)
  - ACCIDENTAL EXPOSURE [None]
  - AGEUSIA [None]
  - DRUG DISPENSING ERROR [None]
  - MEDICATION ERROR [None]
  - MOUTH INJURY [None]
  - ORAL MUCOSAL EXFOLIATION [None]
  - THROAT IRRITATION [None]
